FAERS Safety Report 18910853 (Version 2)
Quarter: 2021Q1

REPORT INFORMATION
  Report Type: Spontaneous
  Country: JP (occurrence: JP)
  Receive Date: 20210218
  Receipt Date: 20210223
  Transmission Date: 20210420
  Serious: Yes (Other)
  Sender: FDA-Public Use
  Company Number: JP-ROCHE-2771068

PATIENT
  Age: 5 Decade
  Sex: Male

DRUGS (4)
  1. ADVATE [Concomitant]
     Active Substance: ANTIHEMOPHILIC FACTOR, HUMAN RECOMBINANT
     Route: 065
     Dates: start: 20210115, end: 20210115
  2. HEMLIBRA [Suspect]
     Active Substance: EMICIZUMAB-KXWH
     Indication: HAEMOPHILIA A WITHOUT INHIBITORS
     Dosage: DOSAGE IS UNCERTAIN.
     Route: 058
     Dates: start: 20210107
  3. HEMLIBRA [Suspect]
     Active Substance: EMICIZUMAB-KXWH
     Dosage: DOSAGE IS UNCERTAIN.
     Route: 058
     Dates: start: 20210204
  4. ADVATE [Concomitant]
     Active Substance: ANTIHEMOPHILIC FACTOR, HUMAN RECOMBINANT
     Indication: HAEMOPHILIA A WITHOUT INHIBITORS
     Dosage: DOSAGE IS UNCERTAIN.
     Route: 065
     Dates: end: 202101

REACTIONS (2)
  - Muscle haemorrhage [Recovering/Resolving]
  - Injection site reaction [Recovered/Resolved]

NARRATIVE: CASE EVENT DATE: 20210115
